FAERS Safety Report 17001521 (Version 1)
Quarter: 2019Q4

REPORT INFORMATION
  Report Type: Report from Study
  Country: AU (occurrence: AU)
  Receive Date: 20191106
  Receipt Date: 20191106
  Transmission Date: 20200122
  Serious: No
  Sender: FDA-Public Use
  Company Number: AU-TOLMAR, INC.-19AU000749

PATIENT
  Age: 74 Year
  Sex: Male

DRUGS (17)
  1. AERON 500 [Concomitant]
  2. FRUSEMIDE [FUROSEMIDE] [Concomitant]
     Active Substance: FUROSEMIDE
  3. ATORVASTATIN [Concomitant]
     Active Substance: ATORVASTATIN
  4. SYMBICORT [Concomitant]
     Active Substance: BUDESONIDE\FORMOTEROL FUMARATE DIHYDRATE
  5. CEFUROXIME. [Concomitant]
     Active Substance: CEFUROXIME
  6. ELIGARD [Suspect]
     Active Substance: LEUPROLIDE ACETATE
     Indication: PROSTATE CANCER
     Dosage: 45 MG, EVERY 6 MONTHS
     Route: 065
     Dates: start: 201901
  7. BISOLVON [Concomitant]
     Active Substance: BROMHEXINE HYDROCHLORIDE
  8. EUTROXSIG [Concomitant]
     Active Substance: LEVOTHYROXINE SODIUM
  9. FUNGILIN [Concomitant]
     Active Substance: AMPHOTERICIN B
  10. OXYCODONE [Concomitant]
     Active Substance: OXYCODONE
  11. RANITIDINE. [Concomitant]
     Active Substance: RANITIDINE
  12. ASPIRIN. [Concomitant]
     Active Substance: ASPIRIN
  13. SPIRIVA [Concomitant]
     Active Substance: TIOTROPIUM BROMIDE MONOHYDRATE
  14. TARGIN [Concomitant]
     Active Substance: NALOXONE HYDROCHLORIDE\OXYCODONE HYDROCHLORIDE
  15. ESOMEPRAZOLE. [Concomitant]
     Active Substance: ESOMEPRAZOLE MAGNESIUM
  16. PREGABALIN. [Concomitant]
     Active Substance: PREGABALIN
  17. SALBUTAMOL [Concomitant]
     Active Substance: ALBUTEROL

REACTIONS (8)
  - Discomfort [Unknown]
  - Back pain [Unknown]
  - Hot flush [Unknown]
  - Fall [Unknown]
  - Agitation [Unknown]
  - Limb injury [Unknown]
  - Back injury [Unknown]
  - Presyncope [Unknown]

NARRATIVE: CASE EVENT DATE: 201908
